FAERS Safety Report 15614627 (Version 1)
Quarter: 2018Q4

REPORT INFORMATION
  Report Type: Spontaneous
  Country: US (occurrence: US)
  Receive Date: 20181113
  Receipt Date: 20181113
  Transmission Date: 20190205
  Serious: No
  Sender: FDA-Public Use
  Company Number: US-MYLANLABS-2018M1080120

PATIENT
  Sex: Male

DRUGS (2)
  1. PRASUGREL TABLETS [Suspect]
     Active Substance: PRASUGREL
     Indication: THROMBOSIS
     Dosage: 10 MG, UNK
     Dates: start: 20180418
  2. PRASUGREL TABLETS [Suspect]
     Active Substance: PRASUGREL
     Dosage: 10 MG, UNK
     Route: 048
     Dates: start: 20181015

REACTIONS (1)
  - Drug effect decreased [Not Recovered/Not Resolved]
